FAERS Safety Report 5669982-4 (Version None)
Quarter: 2008Q1

REPORT INFORMATION
  Report Type: 
  Country: None (occurrence: None)
  Receive Date: 20080312
  Receipt Date: 20080303
  Transmission Date: 20080703
  Serious: Yes (Other)
  Sender: FDA-Public Use
  Company Number: 2007-03913

PATIENT
  Age: 79 Year
  Sex: Male

DRUGS (7)
  1. VELCADE [Suspect]
     Indication: MULTIPLE MYELOMA
     Dosage: 1.30 MG/M2, INTRAVENOUS
     Route: 042
     Dates: start: 20070612
  2. DEXAMETHASONE TAB [Concomitant]
  3. OMEPRAZOLE [Concomitant]
  4. ACYCLOVIR [Concomitant]
  5. SEPTRA [Concomitant]
  6. HIDROXIL PREDNI (PREDNISOLONE, PYRIDOXINE HYDROCHLORIDE, THIAMINE HYDR [Concomitant]
  7. ARANESP [Concomitant]

REACTIONS (2)
  - CONDITION AGGRAVATED [None]
  - THROMBOCYTHAEMIA [None]
